FAERS Safety Report 14110386 (Version 1)
Quarter: 2017Q4

REPORT INFORMATION
  Report Type: Spontaneous
  Country: US (occurrence: US)
  Receive Date: 20171019
  Receipt Date: 20171019
  Transmission Date: 20180321
  Serious: Yes (Other)
  Sender: FDA-Public Use
  Company Number: None

PATIENT
  Age: 32 Year
  Sex: Female
  Weight: 56.7 kg

DRUGS (2)
  1. XANAX [Concomitant]
     Active Substance: ALPRAZOLAM
  2. ZYRTEC-D [Suspect]
     Active Substance: CETIRIZINE HYDROCHLORIDE\PSEUDOEPHEDRINE HYDROCHLORIDE
     Indication: MULTIPLE ALLERGIES
     Route: 048
     Dates: start: 20160323, end: 20171015

REACTIONS (6)
  - Skin burning sensation [None]
  - Therapy cessation [None]
  - Pruritus generalised [None]
  - Dyspepsia [None]
  - Withdrawal syndrome [None]
  - Pain [None]

NARRATIVE: CASE EVENT DATE: 20171016
